FAERS Safety Report 15806249 (Version 1)
Quarter: 2019Q1

REPORT INFORMATION
  Report Type: Spontaneous
  Country: US (occurrence: US)
  Receive Date: 20190110
  Receipt Date: 20190110
  Transmission Date: 20190417
  Serious: No
  Sender: FDA-Public Use
  Company Number: US-PFIZER INC-2017405757

PATIENT
  Age: 11 Year
  Sex: Male

DRUGS (2)
  1. GENOTROPIN [Suspect]
     Active Substance: SOMATROPIN
     Dosage: 1.4 MG, 1X/DAY (NIGHTLY)
     Route: 058
     Dates: start: 20161014
  2. GENOTROPIN [Suspect]
     Active Substance: SOMATROPIN
     Dosage: 1.5 MG, 1X/DAY (NIGHTLY)
     Route: 058
     Dates: start: 20161014

REACTIONS (4)
  - Product dose omission [Unknown]
  - Vomiting [Unknown]
  - Malaise [Unknown]
  - Gastric disorder [Unknown]
